FAERS Safety Report 9207503 (Version 2)
Quarter: 2013Q4

REPORT INFORMATION
  Report Type: Spontaneous
  Country: US (occurrence: US)
  Receive Date: 20130403
  Receipt Date: 20131205
  Transmission Date: 20140711
  Serious: Yes (Other)
  Sender: FDA-Public Use
  Company Number: US-BAYER-2013-039855

PATIENT
  Age: 23 Year
  Sex: Female

DRUGS (8)
  1. YAZ [Suspect]
     Dosage: UNK
     Dates: start: 2005, end: 2009
  2. YASMIN [Suspect]
     Dosage: UNK
     Dates: start: 2005, end: 2009
  3. OCELLA [Suspect]
     Dosage: UNK
     Dates: start: 2005, end: 2009
  4. COLACE [Concomitant]
     Dosage: UNK
     Dates: start: 20100102
  5. METAMUCIL [Concomitant]
     Dosage: UNK
     Dates: start: 20100102
  6. TOPAMAX [Concomitant]
     Dosage: 25 MG, BID
     Dates: start: 20100113
  7. SERTRALINE [Concomitant]
     Dosage: 100 MG, EVERY EVENING
     Dates: start: 20100113
  8. WELLBUTRIN XL [Concomitant]
     Dosage: 75 MG,
     Dates: start: 20100113

REACTIONS (5)
  - Gallbladder disorder [None]
  - Injury [None]
  - Pain [None]
  - Emotional distress [None]
  - Cholecystitis chronic [None]
